FAERS Safety Report 19944933 (Version 1)
Quarter: 2021Q4

REPORT INFORMATION
  Report Type: Spontaneous
  Country: US (occurrence: US)
  Receive Date: 20211011
  Receipt Date: 20211011
  Transmission Date: 20220303
  Serious: Yes (Other)
  Sender: FDA-Public Use
  Company Number: US-JNJFOC-20211004722

PATIENT
  Age: 69 Year

DRUGS (1)
  1. BALVERSA [Suspect]
     Active Substance: ERDAFITINIB
     Indication: Product used for unknown indication
     Route: 065
     Dates: start: 202007

REACTIONS (1)
  - Chorioretinopathy [Unknown]

NARRATIVE: CASE EVENT DATE: 20201001
